FAERS Safety Report 16908358 (Version 1)
Quarter: 2019Q4

REPORT INFORMATION
  Report Type: Spontaneous
  Country: FR (occurrence: FR)
  Receive Date: 20191011
  Receipt Date: 20191011
  Transmission Date: 20200122
  Serious: Yes (Other)
  Sender: FDA-Public Use
  Company Number: FR-ELI_LILLY_AND_COMPANY-FR201910001011

PATIENT
  Age: 11 Year
  Sex: Female
  Weight: 54.4 kg

DRUGS (1)
  1. UMATROPE [Suspect]
     Active Substance: SOMATROPIN
     Indication: GROWTH HORMONE DEFICIENCY
     Dosage: 1.2 MG, DAILY
     Route: 058
     Dates: start: 20180515, end: 20190829

REACTIONS (4)
  - Breast cyst [Recovering/Resolving]
  - Breast pain [Recovering/Resolving]
  - Myalgia [Recovering/Resolving]
  - Bone pain [Recovering/Resolving]

NARRATIVE: CASE EVENT DATE: 201906
